FAERS Safety Report 4653520-9 (Version None)
Quarter: 2005Q2

REPORT INFORMATION
  Report Type: 
  Country: None (occurrence: None)
  Receive Date: 20050505
  Receipt Date: 20050404
  Transmission Date: 20051028
  Serious: Yes (Death)
  Sender: FDA-Public Use
  Company Number: BE-MERCK-0504BEL00053

PATIENT
  Age: 82 Year
  Sex: Male
  Weight: 69 kg

DRUGS (2)
  1. SINGULAIR [Suspect]
     Indication: ASTHMA
     Route: 048
     Dates: start: 20041202, end: 20050120
  2. FLUTICASONE PROPIONATE AND SALMETEROL XINAFOATE [Concomitant]
     Indication: ASTHMA
     Route: 055
     Dates: start: 20040101

REACTIONS (2)
  - DRUG INEFFECTIVE [None]
  - PROSTATE CANCER METASTATIC [None]
